FAERS Safety Report 8389933-1 (Version None)
Quarter: 2012Q2

REPORT INFORMATION
  Report Type: 
  Country: None (occurrence: None)
  Receive Date: 20120518
  Receipt Date: 20120509
  Transmission Date: 20120825
  Serious: Yes (Hospitalization)
  Sender: FDA-Public Use
  Company Number: 2012SP025406

PATIENT
  Age: 56 Year
  Sex: Male

DRUGS (9)
  1. VICTRELIS [Suspect]
     Indication: HEPATITIS C
     Dosage: 800 MG;TID;PO
     Route: 048
     Dates: start: 20120228
  2. CODEINE [Concomitant]
  3. NADOLOL [Concomitant]
  4. PEG-INTRON [Suspect]
     Indication: PRODUCT USED FOR UNKNOWN INDICATION
  5. CITALOPRAM [Concomitant]
  6. PRILOSEC [Concomitant]
  7. NEUPOGEN [Concomitant]
  8. RIBAVIRIN [Suspect]
     Indication: PRODUCT USED FOR UNKNOWN INDICATION
  9. LUNESTA [Concomitant]

REACTIONS (2)
  - DRUG HYPERSENSITIVITY [None]
  - HEPATIC ENCEPHALOPATHY [None]
